FAERS Safety Report 9306322 (Version 1)
Quarter: 2013Q2

REPORT INFORMATION
  Report Type: Spontaneous
  Country: US (occurrence: US)
  Receive Date: 20130523
  Receipt Date: 20130523
  Transmission Date: 20140414
  Serious: No
  Sender: FDA-Public Use
  Company Number: US-ASTRAZENECA-2013SE32666

PATIENT
  Age: 71 Year
  Sex: Female
  Weight: 81.6 kg

DRUGS (7)
  1. NEXIUM [Suspect]
     Indication: HIATUS HERNIA
     Route: 048
     Dates: start: 2003
  2. NEXIUM [Suspect]
     Indication: GASTROOESOPHAGEAL REFLUX DISEASE
     Route: 048
     Dates: start: 2003
  3. NEXIUM [Suspect]
     Indication: HIATUS HERNIA
     Route: 048
  4. NEXIUM [Suspect]
     Indication: GASTROOESOPHAGEAL REFLUX DISEASE
     Route: 048
  5. CRESTOR [Suspect]
     Indication: BLOOD CHOLESTEROL INCREASED
     Route: 048
  6. AMLODIPINE/BESYLATE [Concomitant]
     Indication: HYPERTENSION
     Dosage: 10/20 MG DAILY
     Route: 048
  7. FINASTERIDE [Concomitant]
     Indication: FLUID RETENTION
     Route: 048

REACTIONS (7)
  - Fluid retention [Unknown]
  - Dyspepsia [Unknown]
  - Regurgitation [Unknown]
  - Discomfort [Unknown]
  - Intentional drug misuse [Unknown]
  - Off label use [Unknown]
  - Off label use [Unknown]
